FAERS Safety Report 12262730 (Version 2)
Quarter: 2016Q2

REPORT INFORMATION
  Report Type: Spontaneous
  Country: US (occurrence: US)
  Receive Date: 20160413
  Receipt Date: 20160608
  Transmission Date: 20160815
  Serious: No
  Sender: FDA-Public Use
  Company Number: US-ASTRAZENECA-2016SE35864

PATIENT
  Age: 54 Year
  Sex: Female
  Weight: 65.8 kg

DRUGS (7)
  1. CHEMOTHERAPY [Concomitant]
     Active Substance: UNSPECIFIED INGREDIENT
     Indication: BREAST CANCER
     Route: 065
  2. MIRTAZAPINE. [Concomitant]
     Active Substance: MIRTAZAPINE
     Indication: HOT FLUSH
     Route: 048
     Dates: start: 2001
  3. EFFEXOR [Concomitant]
     Active Substance: VENLAFAXINE HYDROCHLORIDE
     Route: 048
  4. NEURONTIN [Concomitant]
     Active Substance: GABAPENTIN
  5. ARIMIDEX [Suspect]
     Active Substance: ANASTROZOLE
     Indication: BREAST CANCER
     Dosage: DAILY
     Route: 048
     Dates: start: 2001, end: 2003
  6. DURAGESIC [Concomitant]
     Active Substance: FENTANYL
  7. PAIN MEDICATION [Concomitant]
     Active Substance: UNSPECIFIED INGREDIENT

REACTIONS (4)
  - Nerve injury [Unknown]
  - Weight decreased [Unknown]
  - White blood cell count decreased [Unknown]
  - Lymphoedema [Unknown]

NARRATIVE: CASE EVENT DATE: 2001
